FAERS Safety Report 6411530-5 (Version None)
Quarter: 2009Q4

REPORT INFORMATION
  Report Type: 
  Country: None (occurrence: None)
  Receive Date: 20091023
  Receipt Date: 20091013
  Transmission Date: 20100525
  Serious: No
  Sender: FDA-Public Use
  Company Number: US-JNJFOC-20090806706

PATIENT
  Sex: Female
  Weight: 72.58 kg

DRUGS (3)
  1. DURAGESIC-100 [Suspect]
     Indication: PAIN
     Route: 062
  2. XANAX [Concomitant]
     Indication: ANXIETY
     Route: 048
  3. ENABLEX [Concomitant]
     Indication: BLADDER DISORDER
     Route: 048

REACTIONS (1)
  - WRONG TECHNIQUE IN DRUG USAGE PROCESS [None]
